FAERS Safety Report 14074332 (Version 1)
Quarter: 2017Q4

REPORT INFORMATION
  Report Type: Spontaneous
  Country: IL (occurrence: IL)
  Receive Date: 20171010
  Receipt Date: 20171010
  Transmission Date: 20180321
  Serious: Yes (Other)
  Sender: FDA-Public Use
  Company Number: IL-TEVA-812153ISR

PATIENT
  Age: 60 Year
  Sex: Female

DRUGS (2)
  1. CILAZAPRIL [Concomitant]
     Active Substance: CILAZAPRIL ANHYDROUS
     Indication: HYPERTENSION
  2. ACTONEL [Suspect]
     Active Substance: RISEDRONATE SODIUM
     Indication: OSTEOPOROSIS
     Route: 048

REACTIONS (9)
  - Deafness [Not Recovered/Not Resolved]
  - Chills [Recovering/Resolving]
  - Fall [Recovering/Resolving]
  - Nausea [Recovering/Resolving]
  - Asthenia [Recovering/Resolving]
  - Rash generalised [Recovering/Resolving]
  - Dizziness [Recovering/Resolving]
  - Ear disorder [Recovering/Resolving]
  - Abdominal pain [Unknown]

NARRATIVE: CASE EVENT DATE: 201709
